FAERS Safety Report 18078613 (Version 1)
Quarter: 2020Q3

REPORT INFORMATION
  Report Type: Spontaneous
  Country: US (occurrence: US)
  Receive Date: 20200728
  Receipt Date: 20200728
  Transmission Date: 20201103
  Serious: Yes (Other)
  Sender: FDA-Public Use
  Company Number: US-JNJFOC-20200733769

PATIENT
  Sex: Female

DRUGS (1)
  1. TYLENOL PM [Suspect]
     Active Substance: ACETAMINOPHEN\DIPHENHYDRAMINE
     Indication: INSOMNIA
     Dosage: TOOK ONE ALMOST EVERY SINGLE NIGHT
     Route: 065

REACTIONS (3)
  - Somnolence [Recovered/Resolved]
  - Product use in unapproved indication [Recovered/Resolved]
  - Drug dependence [Recovered/Resolved]
